FAERS Safety Report 6639154-5 (Version None)
Quarter: 2010Q1

REPORT INFORMATION
  Report Type: 
  Country: None (occurrence: None)
  Receive Date: 20100312
  Receipt Date: 20100310
  Transmission Date: 20100710
  Serious: Yes (Death, Life-Threatening)
  Sender: FDA-Public Use
  Company Number: 2009SP039547

PATIENT
  Age: 58 Year
  Sex: Female
  Weight: 59 kg

DRUGS (4)
  1. TEMODAL [Suspect]
     Indication: OLIGODENDROGLIOMA
     Dosage: 75 MG/M2;QD;PO
     Route: 048
     Dates: start: 20090919, end: 20091030
  2. EXCEDGRAN (ZONISAMIDE) [Suspect]
     Indication: EPILEPSY
     Dosage: 200 MG;PO
     Route: 048
     Dates: start: 20090824, end: 20091119
  3. EXCEDGRAN (ZONISAMIDE) [Suspect]
     Indication: PROPHYLAXIS
     Dosage: 200 MG;PO
     Route: 048
     Dates: start: 20090824, end: 20091119
  4. BAKTAR [Concomitant]

REACTIONS (9)
  - AGRANULOCYTOSIS [None]
  - BONE MARROW FAILURE [None]
  - CARDIAC FAILURE [None]
  - DECREASED APPETITE [None]
  - DYSPNOEA [None]
  - NAUSEA [None]
  - PNEUMONIA [None]
  - PYREXIA [None]
  - URINARY TRACT INFECTION [None]
